FAERS Safety Report 10958140 (Version 1)
Quarter: 2015Q1

REPORT INFORMATION
  Report Type: Spontaneous
  Country: US (occurrence: US)
  Receive Date: 20150326
  Receipt Date: 20150326
  Transmission Date: 20150721
  Serious: Yes (Hospitalization, Other)
  Sender: FDA-Public Use
  Company Number: US-ELI_LILLY_AND_COMPANY-US201503007618

PATIENT
  Sex: Female

DRUGS (5)
  1. HUMALOG [Suspect]
     Active Substance: INSULIN LISPRO
     Indication: PRODUCT USED FOR UNKNOWN INDICATION
     Dosage: 20 U, TID
     Route: 065
     Dates: start: 201403
  2. HUMALOG [Suspect]
     Active Substance: INSULIN LISPRO
     Dosage: 13 U, QD
     Route: 065
     Dates: start: 201502
  3. HUMALOG [Suspect]
     Active Substance: INSULIN LISPRO
     Dosage: 8 U, EACH EVENING
     Route: 065
     Dates: start: 201502
  4. HUMALOG [Suspect]
     Active Substance: INSULIN LISPRO
     Dosage: 8 U, EACH MORNING
     Route: 065
     Dates: start: 201502
  5. LANTUS [Concomitant]
     Active Substance: INSULIN GLARGINE
     Dosage: UNK, EACH EVENING

REACTIONS (2)
  - Blood creatinine increased [Recovered/Resolved]
  - Chronic kidney disease [Not Recovered/Not Resolved]
